FAERS Safety Report 8950957 (Version 1)
Quarter: 2012Q4

REPORT INFORMATION
  Report Type: 
  Country: IL (occurrence: IL)
  Receive Date: 20121207
  Receipt Date: 20121207
  Transmission Date: 20130627
  Serious: Yes (Death)
  Sender: FDA-Public Use
  Company Number: PHHY2012IL112375

PATIENT
  Sex: Female

DRUGS (2)
  1. SANDOSTATIN LAR [Suspect]
     Indication: CARCINOID SYNDROME
     Dosage: 30 mg, Every 4th week
     Route: 030
     Dates: start: 20090802
  2. SANDOSTATIN LAR [Suspect]
     Dosage: 30 mg, Every 4th week
     Route: 030
     Dates: start: 20120819, end: 20120913

REACTIONS (1)
  - Death [Fatal]
